FAERS Safety Report 6258924-9 (Version None)
Quarter: 2009Q3

REPORT INFORMATION
  Report Type: 
  Country: None (occurrence: None)
  Receive Date: 20090702
  Receipt Date: 20090617
  Transmission Date: 20100115
  Serious: Yes (Hospitalization)
  Sender: FDA-Public Use
  Company Number: TPA2009A01499

PATIENT
  Sex: Male

DRUGS (1)
  1. PREVACID [Suspect]
     Dosage: 30 MG, 1 IN 1 D, PER ORAL
     Route: 048
     Dates: start: 20090601

REACTIONS (5)
  - BREAST MASS [None]
  - DYSPEPSIA [None]
  - GYNAECOMASTIA [None]
  - OESOPHAGEAL FOOD IMPACTION [None]
  - REGURGITATION [None]
